FAERS Safety Report 11222810 (Version 1)
Quarter: 2015Q2

REPORT INFORMATION
  Report Type: Spontaneous
  Country: IN (occurrence: IN)
  Receive Date: 20150626
  Receipt Date: 20150626
  Transmission Date: 20150821
  Serious: Yes (Hospitalization)
  Sender: FDA-Public Use
  Company Number: IN-ASTRAZENECA-2015SE60732

PATIENT
  Sex: Male

DRUGS (5)
  1. T. APRIGLIM MVZ [Concomitant]
     Indication: HYPERTENSION
     Dosage: TWO TIMES A DAY
     Dates: start: 20150525, end: 20150611
  2. CAP. UNISTAR [Concomitant]
     Dates: start: 20150525, end: 20150611
  3. KOMBIGLYZE XR [Suspect]
     Active Substance: METFORMIN HYDROCHLORIDE\SAXAGLIPTIN HYDROCHLORIDE
     Indication: TYPE 2 DIABETES MELLITUS
     Route: 048
     Dates: start: 20150525, end: 20150611
  4. T. OMEZ [Concomitant]
     Dates: start: 20150525, end: 20150611
  5. T. APRIGLIM MVZ [Concomitant]
     Indication: TYPE 2 DIABETES MELLITUS
     Dosage: TWO TIMES A DAY
     Dates: start: 20150525, end: 20150611

REACTIONS (2)
  - Renal failure [Not Recovered/Not Resolved]
  - Pancreatitis [Not Recovered/Not Resolved]

NARRATIVE: CASE EVENT DATE: 20150525
